FAERS Safety Report 9776594 (Version 1)
Quarter: 2013Q4

REPORT INFORMATION
  Report Type: Spontaneous
  Country: US (occurrence: US)
  Receive Date: 20131220
  Receipt Date: 20131220
  Transmission Date: 20140711
  Serious: No
  Sender: FDA-Public Use
  Company Number: US-BIOGENIDEC-2013BI121050

PATIENT
  Age: 59 Year
  Sex: Female

DRUGS (3)
  1. TECFIDERA [Suspect]
     Indication: MULTIPLE SCLEROSIS
     Route: 048
     Dates: start: 20130913
  2. VITAMIN D [Concomitant]
  3. CALCIUM [Concomitant]

REACTIONS (4)
  - Scab [Unknown]
  - Increased tendency to bruise [Unknown]
  - Vascular rupture [Unknown]
  - Pruritus [Unknown]
